FAERS Safety Report 24822684 (Version 1)
Quarter: 2025Q1

REPORT INFORMATION
  Report Type: Spontaneous
  Country: US (occurrence: US)
  Receive Date: 20250109
  Receipt Date: 20250109
  Transmission Date: 20250409
  Serious: No
  Sender: ALKEM
  Company Number: US-ALKEM LABORATORIES LIMITED-US-ALKEM-2024-00215

PATIENT
  Age: 2 Year
  Sex: Male

DRUGS (1)
  1. SILDENAFIL [Suspect]
     Active Substance: SILDENAFIL
     Indication: Product used for unknown indication
     Route: 048

REACTIONS (7)
  - Rhonchi [Unknown]
  - Penis disorder [Unknown]
  - Flushing [Unknown]
  - Priapism [Unknown]
  - Diarrhoea [Unknown]
  - Toxicity to various agents [Unknown]
  - Overdose [Unknown]
